FAERS Safety Report 7957838-3 (Version None)
Quarter: 2011Q4

REPORT INFORMATION
  Report Type: 
  Country: None (occurrence: None)
  Receive Date: 20111130
  Receipt Date: 20111121
  Transmission Date: 20120403
  Serious: Yes (Hospitalization)
  Sender: FDA-Public Use
  Company Number: 2011S1001628

PATIENT
  Age: 57 Year
  Sex: Female

DRUGS (2)
  1. INNFREE [Concomitant]
  2. LIVALO [Suspect]
     Indication: HYPERCHOLESTEROLAEMIA
     Dosage: 1 MG;QOD;PO
     Route: 048
     Dates: start: 20100531, end: 20111028

REACTIONS (1)
  - RHABDOMYOLYSIS [None]
